FAERS Safety Report 6272473-3 (Version None)
Quarter: 2009Q3

REPORT INFORMATION
  Report Type: 
  Country: None (occurrence: None)
  Receive Date: 20090717
  Receipt Date: 20090713
  Transmission Date: 20100115
  Serious: Yes (Hospitalization)
  Sender: FDA-Public Use
  Company Number: US-ABBOTT-09P-163-0585097-00

PATIENT
  Sex: Female

DRUGS (2)
  1. DEPAKOTE [Suspect]
     Indication: DRUG USE FOR UNKNOWN INDICATION
  2. COPAXONE [Interacting]
     Indication: MULTIPLE SCLEROSIS
     Route: 058
     Dates: start: 20050711

REACTIONS (2)
  - DRUG INTERACTION [None]
  - OVERDOSE [None]
